FAERS Safety Report 14390586 (Version 2)
Quarter: 2018Q2

REPORT INFORMATION
  Report Type: Spontaneous
  Country: JP (occurrence: JP)
  Receive Date: 20180116
  Receipt Date: 20180529
  Transmission Date: 20180711
  Serious: Yes (Hospitalization)
  Sender: FDA-Public Use
  Company Number: JP-ROCHE-2055775

PATIENT
  Age: 75 Year
  Sex: Female

DRUGS (2)
  1. PACLITAXEL. [Concomitant]
     Active Substance: PACLITAXEL
  2. AVASTIN [Suspect]
     Active Substance: BEVACIZUMAB
     Indication: BREAST CANCER
     Dosage: DOSAGE IS UNCERTAIN.
     Route: 041

REACTIONS (3)
  - Enterovesical fistula [Recovered/Resolved]
  - Urogenital fistula [Recovered/Resolved]
  - Small intestinal perforation [Recovered/Resolved]

NARRATIVE: CASE EVENT DATE: 2017
